FAERS Safety Report 7310889-4 (Version None)
Quarter: 2011Q1

REPORT INFORMATION
  Report Type: 
  Country: None (occurrence: None)
  Receive Date: 20110224
  Receipt Date: 20110216
  Transmission Date: 20110831
  Serious: Yes (Life-Threatening, Other)
  Sender: FDA-Public Use
  Company Number: GB-PFIZER INC-2010110525

PATIENT
  Sex: Female
  Weight: 62 kg

DRUGS (14)
  1. ONDANSETRON [Suspect]
     Dosage: 8 MG, 3X/DAY
     Route: 042
  2. ACICLOVIR [Suspect]
     Dosage: UNK
  3. MORPHINE [Suspect]
     Route: 042
  4. NORETHISTERONE [Suspect]
     Dosage: 5 MG, 3X/DAY
     Route: 048
  5. CHLORPHENAMINE [Suspect]
     Dosage: 10 MG, 4X/DAY
     Route: 042
  6. CASPOFUNGIN [Suspect]
     Dosage: 70 MG, 1X/DAY
     Route: 042
  7. PARACETAMOL [Suspect]
     Route: 042
  8. KETALAR [Suspect]
     Indication: PAIN
     Dosage: 4 MG/ML 1-6 ML/HOUR INFUSION
     Route: 041
     Dates: start: 20070921, end: 20070928
  9. ETOPOPHOS PRESERVATIVE FREE [Suspect]
     Dosage: 4650 MG, UNK
     Route: 042
     Dates: start: 20070915, end: 20070915
  10. OMEPRAZOLE [Suspect]
     Dosage: UNK
  11. TAZOCIN [Suspect]
     Dosage: 4.5 MG, 3X/DAY
     Route: 042
  12. CICLOSPORIN [Suspect]
     Dosage: UNK
  13. VORICONAZOLE [Suspect]
     Dosage: 200 MG, 2X/DAY
     Route: 048
  14. ALLOPURINOL [Suspect]
     Dosage: 300 MG, 1X/DAY
     Route: 048

REACTIONS (4)
  - LIVER FUNCTION TEST ABNORMAL [None]
  - DILATATION INTRAHEPATIC DUCT ACQUIRED [None]
  - HEPATOTOXICITY [None]
  - VENOOCCLUSIVE LIVER DISEASE [None]
